FAERS Safety Report 16285430 (Version 1)
Quarter: 2019Q2

REPORT INFORMATION
  Report Type: Spontaneous
  Country: IT (occurrence: IT)
  Receive Date: 20190508
  Receipt Date: 20190508
  Transmission Date: 20190711
  Serious: Yes (Hospitalization, Other)
  Sender: FDA-Public Use
  Company Number: IT-ACCORD-126162

PATIENT
  Age: 27 Year
  Sex: Female

DRUGS (1)
  1. QUETIAPINE. [Suspect]
     Active Substance: QUETIAPINE
     Dosage: 50 EXTENDED-RELEASE TABLETS?STRENGTH: 300 MG

REACTIONS (6)
  - Suicide attempt [Unknown]
  - Lactic acidosis [Recovered/Resolved]
  - Sinus tachycardia [Recovered/Resolved]
  - Agitation [Recovered/Resolved]
  - Intentional overdose [Unknown]
  - Seizure [Recovered/Resolved]
